FAERS Safety Report 8724847 (Version 2)
Quarter: 2015Q2

REPORT INFORMATION
  Report Type: Report from Study
  Country: US (occurrence: US)
  Receive Date: 20120815
  Receipt Date: 20150624
  Transmission Date: 20150821
  Serious: Yes (Hospitalization, Other)
  Sender: FDA-Public Use
  Company Number: US-ROCHE-1100501

PATIENT
  Age: 54 Year
  Sex: Male

DRUGS (10)
  1. ACTIVASE [Suspect]
     Active Substance: ALTEPLASE
     Indication: ACUTE MYOCARDIAL INFARCTION
     Route: 040
  2. MORPHINE [Concomitant]
     Active Substance: MORPHINE
     Route: 042
  3. ECOTRIN [Concomitant]
     Active Substance: ASPIRIN
     Route: 065
  4. LOPRESSOR [Concomitant]
     Active Substance: METOPROLOL TARTRATE
     Route: 048
  5. HEPARIN [Concomitant]
     Active Substance: HEPARIN SODIUM
     Dosage: 25000/500 PREMIX
     Route: 065
  6. ACTIVASE [Suspect]
     Active Substance: ALTEPLASE
     Dosage: FOR 60 MIN
     Route: 065
  7. ACTIVASE [Suspect]
     Active Substance: ALTEPLASE
     Route: 065
  8. LOPRESSOR [Concomitant]
     Active Substance: METOPROLOL TARTRATE
     Route: 048
  9. ACTIVASE [Suspect]
     Active Substance: ALTEPLASE
     Dosage: FOR 30 MIN
     Route: 065
  10. LOPRESSOR [Concomitant]
     Active Substance: METOPROLOL TARTRATE
     Route: 048

REACTIONS (2)
  - Hypokinesia [Unknown]
  - Atrial flutter [Unknown]
